FAERS Safety Report 16481282 (Version 1)
Quarter: 2019Q2

REPORT INFORMATION
  Report Type: Report from Study
  Country: None (occurrence: CA)
  Receive Date: 20190626
  Receipt Date: 20190626
  Transmission Date: 20190711
  Serious: Yes (Hospitalization)
  Sender: FDA-Public Use
  Company Number: CA-ABBVIE-19K-028-2767955-00

PATIENT
  Age: 60 Year
  Sex: Male

DRUGS (2)
  1. HUMIRA [Suspect]
     Active Substance: ADALIMUMAB
     Indication: RHEUMATOID ARTHRITIS
     Route: 058
     Dates: end: 20190427
  2. PREDNISONE. [Concomitant]
     Active Substance: PREDNISONE
     Indication: PRODUCT USED FOR UNKNOWN INDICATION

REACTIONS (7)
  - Influenza [Unknown]
  - Lower respiratory tract infection [Recovering/Resolving]
  - Diarrhoea [Unknown]
  - Pneumonia [Unknown]
  - Anger [Unknown]
  - Pneumonia [Recovered/Resolved]
  - Cardiac aneurysm [Recovering/Resolving]

NARRATIVE: CASE EVENT DATE: 201810
